FAERS Safety Report 17389994 (Version 2)
Quarter: 2020Q1

REPORT INFORMATION
  Report Type: Spontaneous
  Country: US (occurrence: US)
  Receive Date: 20200207
  Receipt Date: 20200323
  Transmission Date: 20200409
  Serious: No
  Sender: FDA-Public Use
  Company Number: US-VERTEX PHARMACEUTICALS-2020-001739

PATIENT
  Sex: Male
  Weight: 68 kg

DRUGS (1)
  1. TRIKAFTA [Suspect]
     Active Substance: ELEXACAFTOR\IVACAFTOR\TEZACAFTOR
     Indication: CYSTIC FIBROSIS
     Dosage: 2 TABS (100 MG/ 50 MG/ 75 MG) IN AM AND 1 TAB (150 MG) IN PM
     Route: 048
     Dates: start: 20200111

REACTIONS (8)
  - Insomnia [Recovering/Resolving]
  - Testicular mass [Not Recovered/Not Resolved]
  - Flatulence [Not Recovered/Not Resolved]
  - Weight increased [Unknown]
  - Testicular pain [Not Recovered/Not Resolved]
  - Dyspnoea [Unknown]
  - Abdominal distension [Recovering/Resolving]
  - Epididymitis [Unknown]

NARRATIVE: CASE EVENT DATE: 2020
